FAERS Safety Report 4602896-7 (Version None)
Quarter: 2005Q1

REPORT INFORMATION
  Report Type: 
  Country: None (occurrence: None)
  Receive Date: 20050309
  Receipt Date: 20050228
  Transmission Date: 20050727
  Serious: Yes (Other)
  Sender: FDA-Public Use
  Company Number: PT-GLAXOSMITHKLINE-B0373592A

PATIENT
  Age: 71 Year
  Sex: Female
  Weight: 80 kg

DRUGS (6)
  1. LAMOTRIGINE [Suspect]
     Dosage: 75MG UNKNOWN
     Route: 048
     Dates: start: 20050112, end: 20050118
  2. VENLAFAXINE HCL [Concomitant]
     Dosage: 75MG TWICE PER DAY
  3. MIRTAZAPINE [Concomitant]
     Route: 065
  4. THYRAX [Concomitant]
     Dosage: .15MG PER DAY
  5. BUFLOMEDIL [Concomitant]
     Route: 065
  6. TRIMETAZIDINE HYDROCHLORIDE [Concomitant]
     Route: 065

REACTIONS (2)
  - LYMPHADENITIS [None]
  - PYREXIA [None]
